FAERS Safety Report 5483114-7 (Version None)
Quarter: 2007Q4

REPORT INFORMATION
  Report Type: 
  Country: None (occurrence: None)
  Receive Date: 20071009
  Receipt Date: 20070927
  Transmission Date: 20080405
  Serious: Yes (Other)
  Sender: FDA-Public Use
  Company Number: 238350K07USA

PATIENT
  Age: 41 Year
  Sex: Female

DRUGS (1)
  1. REBIF [Suspect]
     Indication: MULTIPLE SCLEROSIS
     Dosage: 44 MCG, 3 IN 1 WEEKS, SUBCUTANEOUS
     Route: 058
     Dates: start: 20040711

REACTIONS (7)
  - ABDOMINAL PAIN [None]
  - BLOOD DISORDER [None]
  - INJECTION SITE MASS [None]
  - INJECTION SITE REACTION [None]
  - MEDICATION ERROR [None]
  - POISONING [None]
  - PYREXIA [None]
